FAERS Safety Report 13294694 (Version 4)
Quarter: 2017Q4

REPORT INFORMATION
  Report Type: Report from Study
  Country: JP (occurrence: JP)
  Receive Date: 20170303
  Receipt Date: 20171031
  Transmission Date: 20180320
  Serious: Yes (Death, Disabling)
  Sender: FDA-Public Use
  Company Number: JP-ASTRAZENECA-2017SE22309

PATIENT
  Age: 61 Year
  Sex: Male
  Weight: 41 kg

DRUGS (2)
  1. TAGRISSO [Suspect]
     Active Substance: OSIMERTINIB
     Indication: NON-SMALL CELL LUNG CANCER
     Route: 048
     Dates: start: 20170210, end: 20170220
  2. TAGRISSO [Suspect]
     Active Substance: OSIMERTINIB
     Indication: NON-SMALL CELL LUNG CANCER
     Route: 048
     Dates: start: 20170307, end: 20170403

REACTIONS (1)
  - Hepatic function abnormal [Not Recovered/Not Resolved]

NARRATIVE: CASE EVENT DATE: 20170216
